APPROVED DRUG PRODUCT: FYAVOLV
Active Ingredient: ETHINYL ESTRADIOL; NORETHINDRONE ACETATE
Strength: 0.005MG;1MG
Dosage Form/Route: TABLET;ORAL
Application: A204213 | Product #002 | TE Code: AB
Applicant: LUPIN LTD
Approved: Dec 10, 2015 | RLD: No | RS: No | Type: RX